FAERS Safety Report 6310764-8 (Version None)
Quarter: 2009Q3

REPORT INFORMATION
  Report Type: 
  Country: None (occurrence: None)
  Receive Date: 20090811
  Receipt Date: 20090727
  Transmission Date: 20100115
  Serious: Yes (Death, Hospitalization)
  Sender: FDA-Public Use
  Company Number: 2009001999

PATIENT
  Age: 76 Year
  Sex: Female

DRUGS (8)
  1. ERLOTINIB (ERLOTINIB) (TABLET) (ERLOTINIB) [Suspect]
     Indication: PANCREATIC CARCINOMA METASTATIC
     Dosage: 100 MG, QD, ORAL
     Route: 048
     Dates: start: 20081218, end: 20090331
  2. GEMCITABINE [Suspect]
     Dosage: 100 MG, EVERY 7 DAYS), INTRA CORPUS CAVERNOSUM
     Route: 011
     Dates: start: 20081218, end: 20090327
  3. OMEPRAZOLE [Concomitant]
  4. AMOXICILLIN [Concomitant]
  5. LORAZEPAM [Concomitant]
  6. METAMIZOL [Concomitant]
  7. CLORURO MORFICO (MORPHINE) [Concomitant]
  8. PARACETAMOL (PARACETAMOL) [Concomitant]

REACTIONS (5)
  - BONE MARROW FAILURE [None]
  - DISEASE PROGRESSION [None]
  - HAEMOGLOBIN DECREASED [None]
  - RECTAL HAEMORRHAGE [None]
  - WHITE BLOOD CELL COUNT DECREASED [None]
